FAERS Safety Report 8020719-3 (Version None)
Quarter: 2012Q1

REPORT INFORMATION
  Report Type: 
  Country: None (occurrence: None)
  Receive Date: 20120104
  Receipt Date: 20111228
  Transmission Date: 20120608
  Serious: Yes (Other)
  Sender: FDA-Public Use
  Company Number: US-ASTRAZENECA-2009SE24715

PATIENT
  Age: 645 Month
  Sex: Male

DRUGS (6)
  1. DARVON [Concomitant]
     Dates: start: 20080101
  2. SEROQUEL [Suspect]
     Indication: DEPRESSION
     Route: 048
     Dates: start: 20040601, end: 20050201
  3. ACE INHIBITORS [Concomitant]
     Indication: BLOOD PRESSURE
     Dates: start: 20060101
  4. LORTAB [Concomitant]
     Dates: start: 20080306
  5. JANUMET [Concomitant]
     Dates: end: 20090101
  6. BENICAR [Concomitant]
     Dates: end: 20090101

REACTIONS (4)
  - TYPE 2 DIABETES MELLITUS [None]
  - DIABETIC NEUROPATHY [None]
  - TYPE 1 DIABETES MELLITUS [None]
  - DIABETES MELLITUS INADEQUATE CONTROL [None]
